FAERS Safety Report 9180863 (Version 3)
Quarter: 2013Q4

REPORT INFORMATION
  Report Type: Spontaneous
  Country: US (occurrence: US)
  Receive Date: 20130322
  Receipt Date: 20131111
  Transmission Date: 20140711
  Serious: Yes (Hospitalization, Other)
  Sender: FDA-Public Use
  Company Number: US-BAYER-2013-035041

PATIENT
  Age: 40 Year
  Sex: Female
  Weight: 68 kg

DRUGS (4)
  1. MIRENA [Suspect]
     Indication: CONTRACEPTION
     Dosage: 20 MCG/24HR, CONT
     Route: 015
     Dates: start: 20101019, end: 20110523
  2. MIRENA [Suspect]
     Indication: MENORRHAGIA
  3. MACROBID [Concomitant]
  4. VITAMIN D [Concomitant]

REACTIONS (9)
  - Uterine perforation [None]
  - Injury [None]
  - Pain [None]
  - Emotional distress [None]
  - Genital haemorrhage [None]
  - Abdominal pain [None]
  - Depression [None]
  - Anxiety [None]
  - Device issue [None]
